FAERS Safety Report 8975025 (Version 1)
Quarter: 2012Q4

REPORT INFORMATION
  Report Type: 
  Country: DE (occurrence: DE)
  Receive Date: 20121219
  Receipt Date: 20121219
  Transmission Date: 20130627
  Serious: Yes (Death, Life-Threatening, Hospitalization, Congenital Anomaly, Other)
  Sender: FDA-Public Use
  Company Number: DE-ELI_LILLY_AND_COMPANY-DE201212005407

PATIENT

DRUGS (4)
  1. FLUCTIN [Suspect]
     Indication: DEPRESSION
     Dosage: 40 mg, qd
     Route: 064
  2. FLUCTIN [Suspect]
     Dosage: 20 mg, qd
     Route: 064
  3. FEMIBION [Concomitant]
     Indication: VITAMIN SUPPLEMENTATION
     Dosage: 0.8 mg, qd
     Route: 064
  4. FOLIC ACID [Concomitant]
     Dosage: 1 DF, unknown
     Route: 064

REACTIONS (5)
  - Double outlet right ventricle [Fatal]
  - Transposition of the great vessels [Unknown]
  - Ventricular septal defect [Unknown]
  - Fungal sepsis [Unknown]
  - Foetal exposure during pregnancy [Unknown]
